FAERS Safety Report 11768866 (Version 2)
Quarter: 2015Q4

REPORT INFORMATION
  Report Type: Spontaneous
  Country: US (occurrence: US)
  Receive Date: 20151123
  Receipt Date: 20151202
  Transmission Date: 20160304
  Serious: No
  Sender: FDA-Public Use
  Company Number: US-PFIZER INC-2015401399

PATIENT
  Age: 66 Year
  Sex: Female
  Weight: 77 kg

DRUGS (3)
  1. HYGROTON [Concomitant]
     Active Substance: CHLORTHALIDONE
     Indication: HYPERTENSION
     Dosage: 12.5 MG, ONE HALF OF A 25MG TABLET DAILY
     Route: 048
     Dates: start: 2005
  2. DUAVEE [Suspect]
     Active Substance: BAZEDOXIFENE ACETATE\ESTROGENS, CONJUGATED
     Indication: HOT FLUSH
     Dosage: 1 DF (0.45/20MG ONE TABLET), EVERY 24HOURS
     Route: 048
     Dates: start: 201506, end: 201510
  3. ATENOLOL. [Concomitant]
     Active Substance: ATENOLOL
     Indication: HYPERTENSION
     Dosage: 50 MG, 2X/DAY
     Route: 048
     Dates: start: 2005

REACTIONS (2)
  - Paraesthesia [Recovered/Resolved]
  - Drug effect delayed [Recovered/Resolved]

NARRATIVE: CASE EVENT DATE: 201506
